FAERS Safety Report 22588278 (Version 1)
Quarter: 2023Q2

REPORT INFORMATION
  Report Type: Spontaneous
  Country: GB (occurrence: GB)
  Receive Date: 20230612
  Receipt Date: 20230612
  Transmission Date: 20230722
  Serious: Yes (Death, Hospitalization, Other)
  Sender: FDA-Public Use
  Company Number: None

PATIENT
  Age: 89 Year
  Sex: Male

DRUGS (5)
  1. PREGABALIN [Suspect]
     Active Substance: PREGABALIN
     Indication: Peripheral vascular disorder
     Dosage: UNK (TABLET)
     Route: 065
     Dates: start: 20200118, end: 20200320
  2. PREGABALIN [Suspect]
     Active Substance: PREGABALIN
     Dosage: UNK (INCREASED DOSE)
     Route: 065
  3. MORPHINE SULFATE [Suspect]
     Active Substance: MORPHINE SULFATE
     Indication: Pain
     Dosage: UNK
     Route: 065
     Dates: start: 20200220
  4. CODEINE [Concomitant]
     Active Substance: CODEINE
     Indication: Product used for unknown indication
     Dosage: UNK
     Route: 065
  5. Nexium (Esomeprazole Magnesium Trihydrate, Esomeprazole Sodium) [Concomitant]
     Indication: Epigastric discomfort
     Dosage: UNK
     Route: 065

REACTIONS (13)
  - Death [Fatal]
  - Fall [Unknown]
  - Movement disorder [Unknown]
  - Peripheral swelling [Unknown]
  - Muscular weakness [Unknown]
  - Vision blurred [Unknown]
  - Disturbance in attention [Unknown]
  - Constipation [Unknown]
  - Diarrhoea [Unknown]
  - Hallucination [Unknown]
  - Vomiting [Unknown]
  - Medication error [Unknown]
  - Overdose [Unknown]

NARRATIVE: CASE EVENT DATE: 20200121
